FAERS Safety Report 5239937-2 (Version None)
Quarter: 2007Q1

REPORT INFORMATION
  Report Type: 
  Country: None (occurrence: None)
  Receive Date: 20070216
  Receipt Date: 20070206
  Transmission Date: 20070707
  Serious: Yes (Other)
  Sender: FDA-Public Use
  Company Number: US-PFIZER INC-2005140619

PATIENT
  Sex: Male

DRUGS (9)
  1. NEURONTIN [Suspect]
     Indication: DIABETIC NEUROPATHY
     Route: 048
  2. NEURONTIN [Suspect]
     Indication: BIPOLAR DISORDER
  3. ZOLOFT [Suspect]
     Route: 048
  4. ALCOHOL [Suspect]
     Route: 048
  5. MARIJUANA [Suspect]
  6. ELAVIL [Concomitant]
  7. METFORMIN HCL [Concomitant]
  8. INSULIN [Concomitant]
  9. GEODON [Concomitant]

REACTIONS (8)
  - DRUG INEFFECTIVE [None]
  - HALLUCINATION, AUDITORY [None]
  - HALLUCINATION, TACTILE [None]
  - HOMICIDAL IDEATION [None]
  - OVERDOSE [None]
  - SCHIZOAFFECTIVE DISORDER [None]
  - SUICIDAL IDEATION [None]
  - SUICIDE ATTEMPT [None]
